FAERS Safety Report 5079201-8 (Version None)
Quarter: 2006Q3

REPORT INFORMATION
  Report Type: 
  Country: None (occurrence: None)
  Receive Date: 20060720
  Receipt Date: 20050805
  Transmission Date: 20061208
  Serious: Yes (Hospitalization)
  Sender: FDA-Public Use
  Company Number: 2005112441

PATIENT
  Age: 60 Year
  Sex: Male
  Weight: 107.5025 kg

DRUGS (1)
  1. CELEBREX [Suspect]
     Indication: ARTHRITIS
     Dosage: 200 MG (200 MG, 1 IN 1 D),
     Dates: end: 20030101

REACTIONS (10)
  - CARDIOVASCULAR DISORDER [None]
  - DYSPEPSIA [None]
  - DYSPHONIA [None]
  - FATIGUE [None]
  - HYPERTENSION [None]
  - LUNG INFECTION [None]
  - MYOCARDIAL INFARCTION [None]
  - PAIN [None]
  - PHOTOSENSITIVITY REACTION [None]
  - WEIGHT DECREASED [None]
